FAERS Safety Report 6753901-3 (Version None)
Quarter: 2010Q2

REPORT INFORMATION
  Report Type: 
  Country: None (occurrence: None)
  Receive Date: 20100520
  Receipt Date: 20090506
  Transmission Date: 20101027
  Serious: Yes (Hospitalization, Other)
  Sender: FDA-Public Use
  Company Number: 2009209280

PATIENT
  Age: 63 Year
  Sex: Female

DRUGS (10)
  1. PROVERA [Suspect]
     Indication: HORMONE REPLACEMENT THERAPY
     Dosage: 10 MG
     Dates: start: 19840101, end: 19980101
  2. PREMARIN [Suspect]
     Indication: HORMONE REPLACEMENT THERAPY
     Dosage: 0.625 MG
     Dates: start: 19790101, end: 19980101
  3. PREMPRO [Suspect]
     Indication: HORMONE REPLACEMENT THERAPY
     Dosage: 0.625/2.5MG ; 0.45/1.5MG
     Dates: start: 19980101, end: 20030701
  4. PREMPRO [Suspect]
     Indication: HORMONE REPLACEMENT THERAPY
     Dosage: 0.625/2.5MG ; 0.45/1.5MG
     Dates: start: 20030701, end: 20070201
  5. PREDNISONE TAB [Concomitant]
  6. LORAZEPAM [Concomitant]
  7. ETODOLAC [Concomitant]
  8. HYDROXYCHLOROQUINE SULFATE [Concomitant]
  9. FOLIC ACID [Concomitant]
  10. METHOTREXATE [Concomitant]

REACTIONS (1)
  - BREAST CANCER [None]
